FAERS Safety Report 12274337 (Version 1)
Quarter: 2016Q2

REPORT INFORMATION
  Report Type: Spontaneous
  Country: US (occurrence: US)
  Receive Date: 20160415
  Receipt Date: 20160415
  Transmission Date: 20160815
  Serious: No
  Sender: FDA-Public Use
  Company Number: US-ALLERGAN-1511194US

PATIENT
  Sex: Female
  Weight: 52.15 kg

DRUGS (2)
  1. UNISOM SLEEPGELS NIGHTTIME SLEEP-AID [Concomitant]
     Active Substance: DIPHENHYDRAMINE HYDROCHLORIDE
     Indication: INSOMNIA
     Dosage: UNK
  2. LATISSE [Suspect]
     Active Substance: BIMATOPROST
     Indication: GROWTH OF EYELASHES
     Dosage: ONE DROP ON BRUSH TO UPPER EYELIDS
     Route: 047
     Dates: start: 201504

REACTIONS (2)
  - Medication error [Unknown]
  - Drug ineffective [Unknown]
